FAERS Safety Report 8446858-0 (Version None)
Quarter: 2012Q2

REPORT INFORMATION
  Report Type: 
  Country: None (occurrence: None)
  Receive Date: 20120612
  Receipt Date: 20120612
  Transmission Date: 20120825
  Serious: Yes (Other)
  Sender: FDA-Public Use
  Company Number: None

PATIENT
  Age: 35 Year
  Sex: Female
  Weight: 93 kg

DRUGS (3)
  1. ALBUTEROL [Concomitant]
  2. AVEENO POSITIVELY SMOOTH SHAVE GEL [Suspect]
     Indication: PROPHYLAXIS
     Dosage: QUARTER SIZE, ONCE, VAGINAL
     Route: 067
     Dates: end: 20120428
  3. QVAR 80 [Concomitant]

REACTIONS (7)
  - PELVIC INFLAMMATORY DISEASE [None]
  - SECRETION DISCHARGE [None]
  - VULVOVAGINAL BURNING SENSATION [None]
  - BLISTER [None]
  - PELVIC PAIN [None]
  - LACERATION [None]
  - ACCIDENTAL EXPOSURE [None]
